FAERS Safety Report 9117828 (Version 3)
Quarter: 2013Q3

REPORT INFORMATION
  Report Type: Report from Study
  Country: JP (occurrence: JP)
  Receive Date: 20130208
  Receipt Date: 20130819
  Transmission Date: 20140515
  Serious: Yes (Life-Threatening, Other)
  Sender: FDA-Public Use
  Company Number: PHHY2012JP050689

PATIENT
  Age: 29 Year
  Sex: Female
  Weight: 58 kg

DRUGS (5)
  1. FTY 720 [Suspect]
     Indication: MULTIPLE SCLEROSIS
     Dosage: 0.5 MG, QD
     Route: 048
     Dates: start: 20120604, end: 20120711
  2. PREDNISOLONE [Concomitant]
     Indication: MULTIPLE SCLEROSIS
     Dosage: 10 MG, UNK
     Route: 048
  3. PARIET [Concomitant]
     Indication: PROPHYLAXIS
     Dosage: 10 MG, UNK
     Route: 048
  4. BENET [Concomitant]
     Indication: PROPHYLAXIS
     Dosage: 17.5 MG, UNK
     Route: 048
  5. LYRICA [Concomitant]
     Indication: HYPOAESTHESIA
     Dosage: 150 MG, UNK

REACTIONS (3)
  - Lymphocyte count decreased [Recovered/Resolved]
  - Malaise [Recovering/Resolving]
  - Neutrophil percentage increased [Unknown]
